FAERS Safety Report 9398763 (Version 1)
Quarter: 2013Q3

REPORT INFORMATION
  Report Type: Spontaneous
  Country: FR (occurrence: FR)
  Receive Date: 20130712
  Receipt Date: 20130712
  Transmission Date: 20140515
  Serious: Yes (Hospitalization)
  Sender: FDA-Public Use
  Company Number: FR-TEVA-417497ISR

PATIENT
  Age: 90 Year
  Sex: Male

DRUGS (6)
  1. FUROSEMIDE TEVA 40 MG, SCORED TABLET Y176 [Suspect]
     Indication: HYPERTENSION
     Dosage: 1 DOSAGE FORMS DAILY;
     Route: 048
     Dates: end: 201306
  2. TRINITRINE [Concomitant]
  3. SECTRAL 400 [Concomitant]
  4. AVODART [Concomitant]
  5. FLECAINE [Concomitant]
  6. AMLOR [Concomitant]
     Dosage: LONG TERM TREATMENT

REACTIONS (1)
  - Cardiac failure acute [Recovered/Resolved]
